FAERS Safety Report 25043143 (Version 1)
Quarter: 2025Q1

REPORT INFORMATION
  Report Type: Report from Study
  Country: US (occurrence: US)
  Receive Date: 20250305
  Receipt Date: 20250305
  Transmission Date: 20250408
  Serious: Yes (Other)
  Sender: BEIGENE
  Company Number: US-BEIGENE-BGN-2025-003483

PATIENT
  Age: 66 Year
  Weight: 76.19 kg

DRUGS (1)
  1. BRUKINSA [Suspect]
     Active Substance: ZANUBRUTINIB
     Indication: Chronic lymphocytic leukaemia
     Dosage: 80 MILLIGRAM, BID

REACTIONS (3)
  - Internal haemorrhage [Recovering/Resolving]
  - Haematuria [Recovering/Resolving]
  - Increased tendency to bruise [Recovering/Resolving]
